FAERS Safety Report 23848128 (Version 1)
Quarter: 2024Q2

REPORT INFORMATION
  Report Type: Spontaneous
  Country: PL (occurrence: PL)
  Receive Date: 20240513
  Receipt Date: 20240513
  Transmission Date: 20240716
  Serious: Yes (Hospitalization)
  Sender: FDA-Public Use
  Company Number: PL-Orion Corporation ORION PHARMA-DEX 2024-0015

PATIENT
  Age: 42 Year
  Sex: Male
  Weight: 132 kg

DRUGS (15)
  1. KETAMINE HYDROCHLORIDE [Suspect]
     Active Substance: KETAMINE HYDROCHLORIDE
     Indication: Anaesthesia
     Dosage: 40 MG
     Route: 042
  2. SEVOFLURANE [Suspect]
     Active Substance: SEVOFLURANE
     Indication: Anaesthesia
  3. DEXMEDETOMIDINE [Suspect]
     Active Substance: DEXMEDETOMIDINE
     Indication: Sedation
     Dosage: INFUSION
  4. DEXMEDETOMIDINE [Suspect]
     Active Substance: DEXMEDETOMIDINE
     Dosage: FREQ:1 H;INFUSION;CONTINUED AFTER EXTUBATION AND THROUGHOUT FIRST 24 H OF POSTOPERATIVE CARE UNIT
  5. DEXMEDETOMIDINE [Suspect]
     Active Substance: DEXMEDETOMIDINE
  6. PROPOFOL [Suspect]
     Active Substance: PROPOFOL
     Indication: Anaesthesia
  7. BUPIVACAINE [Suspect]
     Active Substance: BUPIVACAINE
     Indication: Anaesthesia
     Dosage: TOTAL VOLUME OF 40 ML 0.25%
  8. MAGNESIUM SULFATE [Suspect]
     Active Substance: MAGNESIUM SULFATE\MAGNESIUM SULFATE HEPTAHYDRATE
     Indication: Analgesic therapy
  9. LIDOCAINE [Suspect]
     Active Substance: LIDOCAINE
     Indication: Sedation
     Dosage: INFUSION; 0.9% NACL UP TO 50 ML
  10. LIDOCAINE [Suspect]
     Active Substance: LIDOCAINE
     Dosage: INFUSION
  11. LIDOCAINE [Suspect]
     Active Substance: LIDOCAINE
     Dosage: FREQ:1 H;INFUSION; CONTINUED AFTER THE EXTUBATION AND THROUGHOUT THE FIRST 24 H OF  POSTOPERATIVE CA
  12. METAMIZOLE [Concomitant]
     Active Substance: METAMIZOLE
  13. ACETAMINOPHEN [Concomitant]
     Active Substance: ACETAMINOPHEN
  14. OXYGEN [Concomitant]
     Active Substance: OXYGEN
     Dosage: HIGH-FLOW
     Route: 045
  15. ROCURONIUM BROMIDE [Concomitant]
     Active Substance: ROCURONIUM BROMIDE

REACTIONS (2)
  - Sedation complication [Unknown]
  - Somnolence [Recovered/Resolved]
